FAERS Safety Report 25075924 (Version 1)
Quarter: 2025Q1

REPORT INFORMATION
  Report Type: Spontaneous
  Country: US (occurrence: US)
  Receive Date: 20250313
  Receipt Date: 20250313
  Transmission Date: 20250408
  Serious: No
  Sender: MERCK SHARP & DOHME LLC
  Company Number: US-PFIZER INC-202500033797

PATIENT
  Age: 60 Year
  Sex: Female

DRUGS (2)
  1. TUKYSA [Suspect]
     Active Substance: TUCATINIB
     Dosage: 2 DF, 2X/DAY (2 TABS ORAL EVERY 12 HOURS)
     Route: 048
  2. HERCEPTIN [Concomitant]
     Active Substance: TRASTUZUMAB

REACTIONS (2)
  - Off label use [Unknown]
  - Product use issue [Unknown]
